FAERS Safety Report 7686206-7 (Version None)
Quarter: 2011Q3

REPORT INFORMATION
  Report Type: 
  Country: None (occurrence: None)
  Receive Date: 20110816
  Receipt Date: 20110805
  Transmission Date: 20111222
  Serious: Yes (Other)
  Sender: FDA-Public Use
  Company Number: JP-JNJFOC-20110605125

PATIENT
  Sex: Female
  Weight: 60 kg

DRUGS (9)
  1. REMICADE [Suspect]
     Route: 042
     Dates: start: 20100708
  2. REMICADE [Suspect]
     Route: 042
     Dates: start: 20101012
  3. AZULFIDINE [Concomitant]
     Route: 048
  4. ISONIAZID [Concomitant]
     Indication: ANTIBIOTIC PROPHYLAXIS
     Dates: start: 20100701, end: 20100930
  5. REMICADE [Suspect]
     Route: 042
     Dates: start: 20100722
  6. REMICADE [Suspect]
     Indication: ANKYLOSING SPONDYLITIS
     Route: 042
     Dates: start: 20100818
  7. REMICADE [Suspect]
     Route: 042
     Dates: start: 20101207
  8. METHOTREXATE [Suspect]
     Indication: ANKYLOSING SPONDYLITIS
     Route: 048
     Dates: start: 20100708, end: 20110202
  9. REMICADE [Suspect]
     Route: 042
     Dates: start: 20110202

REACTIONS (1)
  - HERPES ZOSTER [None]
